FAERS Safety Report 4360308-5 (Version None)
Quarter: 2004Q2

REPORT INFORMATION
  Report Type: 
  Country: None (occurrence: None)
  Receive Date: 20040519
  Receipt Date: 20040510
  Transmission Date: 20050107
  Serious: Yes (Other)
  Sender: FDA-Public Use
  Company Number: DE-JNJFOC-20040501274

PATIENT
  Age: 24 Year
  Sex: Female

DRUGS (3)
  1. REMICADE [Suspect]
     Route: 042
  2. MESALAZINE [Concomitant]
     Indication: CROHN'S DISEASE
     Route: 049
  3. AZATHIOPRINE [Concomitant]
     Indication: CROHN'S DISEASE
     Route: 049

REACTIONS (1)
  - DRUG EXPOSURE DURING PREGNANCY [None]
